FAERS Safety Report 4851413-5 (Version None)
Quarter: 2005Q4

REPORT INFORMATION
  Report Type: 
  Country: None (occurrence: None)
  Receive Date: 20051212
  Receipt Date: 20050727
  Transmission Date: 20060501
  Serious: Yes (Death, Hospitalization, Other)
  Sender: FDA-Public Use
  Company Number: JP-BRISTOL-MYERS SQUIBB COMPANY-13060702

PATIENT
  Age: 96 Year
  Sex: Female

DRUGS (23)
  1. GATIFLOXACIN [Suspect]
     Indication: CYSTITIS
     Route: 048
     Dates: start: 20050719, end: 20050720
  2. FLOMOX [Concomitant]
     Indication: CYSTITIS
     Route: 048
     Dates: start: 20050707, end: 20050714
  3. CRAVIT [Concomitant]
     Indication: CYSTITIS
     Route: 048
     Dates: start: 20050714, end: 20050719
  4. TORSEMIDE [Concomitant]
     Dosage: 06-JUL-2005 TO 25-JUL-2005, RESTARTED 17-AUG-2005 TO 25-AUG-2005
     Route: 048
     Dates: start: 20050706, end: 20050825
  5. HALFDIGOXIN [Concomitant]
     Route: 048
     Dates: start: 20050706, end: 20050720
  6. VERAPAMIL [Concomitant]
     Route: 048
     Dates: start: 20050706, end: 20050725
  7. DEKASOFT [Concomitant]
     Route: 048
     Dates: start: 20050706, end: 20050725
  8. ISOSORBIDE MONONITRATE [Concomitant]
     Route: 048
     Dates: start: 20050706, end: 20050805
  9. ATELEC [Concomitant]
     Route: 048
     Dates: start: 20050717, end: 20050725
  10. RENIVACE [Concomitant]
     Route: 048
     Dates: start: 20050813, end: 20050825
  11. RENIVACE [Concomitant]
     Route: 048
     Dates: start: 20050706, end: 20050805
  12. RENIVACE [Concomitant]
     Route: 048
     Dates: start: 20050811, end: 20050812
  13. SIGMART [Concomitant]
     Route: 048
     Dates: start: 20050706, end: 20050805
  14. ADALAT [Concomitant]
     Route: 048
     Dates: start: 20050726, end: 20050805
  15. FOLIAMIN [Concomitant]
     Route: 048
     Dates: start: 20050716, end: 20050805
  16. FLOMOX [Concomitant]
     Route: 048
     Dates: start: 20050708, end: 20050714
  17. CRAVIT [Concomitant]
     Route: 048
     Dates: start: 20050714, end: 20050719
  18. CYANOCOBALAMIN [Concomitant]
     Route: 048
     Dates: start: 20050714, end: 20050716
  19. KELNAC [Concomitant]
     Route: 048
     Dates: start: 20050714, end: 20050725
  20. LASIX [Concomitant]
     Route: 048
     Dates: start: 20050723, end: 20050725
  21. KAYEXALATE [Concomitant]
     Route: 048
     Dates: start: 20050728, end: 20050804
  22. TANADOPA [Concomitant]
     Route: 048
     Dates: start: 20050804, end: 20050805
  23. EMABERIN L [Concomitant]
     Route: 048
     Dates: start: 20050707, end: 20050712

REACTIONS (10)
  - ADAMS-STOKES SYNDROME [None]
  - ATRIOVENTRICULAR BLOCK COMPLETE [None]
  - BLOOD PRESSURE SYSTOLIC INCREASED [None]
  - CARDIAC ARREST [None]
  - CARDIAC FAILURE [None]
  - CONVULSION [None]
  - DEPRESSED LEVEL OF CONSCIOUSNESS [None]
  - HYPERKALAEMIA [None]
  - INFECTION [None]
  - RENAL FAILURE [None]
